FAERS Safety Report 9733076 (Version 1)
Quarter: 2013Q4

REPORT INFORMATION
  Report Type: Spontaneous
  Country: NL (occurrence: NL)
  Receive Date: 20131205
  Receipt Date: 20131205
  Transmission Date: 20140711
  Serious: Yes (Other)
  Sender: FDA-Public Use
  Company Number: NL-PFIZER INC-2013345231

PATIENT
  Age: 24 Year
  Sex: Female
  Weight: 49 kg

DRUGS (4)
  1. SALAZOPYRINE [Suspect]
     Indication: SPONDYLOARTHROPATHY
     Dosage: 1000 MG, 2X/DAY
     Dates: start: 201309
  2. PREDNISOLON [Interacting]
     Indication: SPONDYLOARTHROPATHY
     Dosage: 15 MG, 1X/DAY
     Dates: start: 201310
  3. PREDNISOLON [Interacting]
     Dosage: 10 MG, 1X/DAY
  4. PREDNISOLON [Interacting]
     Dosage: 7.5 MG, 1X/DAY

REACTIONS (2)
  - Drug interaction [Recovering/Resolving]
  - Metrorrhagia [Recovering/Resolving]
